FAERS Safety Report 20796689 (Version 5)
Quarter: 2022Q4

REPORT INFORMATION
  Report Type: Spontaneous
  Country: JP (occurrence: JP)
  Receive Date: 20220506
  Receipt Date: 20221026
  Transmission Date: 20230113
  Serious: Yes (Life-Threatening, Hospitalization, Other)
  Sender: FDA-Public Use
  Company Number: JP-BRISTOL-MYERS SQUIBB COMPANY-BMS-2022-023542

PATIENT
  Age: 72 Year
  Sex: Male
  Weight: 70.9 kg

DRUGS (27)
  1. YERVOY [Suspect]
     Active Substance: IPILIMUMAB
     Indication: Non-small cell lung cancer recurrent
     Dosage: 70.9 MG
     Route: 041
     Dates: start: 20210406, end: 20210521
  2. YERVOY [Suspect]
     Active Substance: IPILIMUMAB
     Dosage: UNK
     Route: 041
  3. YERVOY [Suspect]
     Active Substance: IPILIMUMAB
     Route: 041
  4. YERVOY [Suspect]
     Active Substance: IPILIMUMAB
     Route: 041
  5. YERVOY [Suspect]
     Active Substance: IPILIMUMAB
     Dosage: UNKNOWN
     Route: 041
  6. OPDIVO [Suspect]
     Active Substance: NIVOLUMAB
     Indication: Non-small cell lung cancer recurrent
     Dosage: UNK
     Route: 041
  7. OPDIVO [Suspect]
     Active Substance: NIVOLUMAB
     Route: 041
  8. OPDIVO [Suspect]
     Active Substance: NIVOLUMAB
     Route: 041
  9. OPDIVO [Suspect]
     Active Substance: NIVOLUMAB
     Dosage: UNKNOWN
     Route: 041
  10. TADALAFIL [Concomitant]
     Active Substance: TADALAFIL
     Indication: Product used for unknown indication
     Dosage: 5 MG, EVERYDAY
     Route: 048
  11. NESINA [Concomitant]
     Active Substance: ALOGLIPTIN BENZOATE
     Indication: Product used for unknown indication
     Dosage: 12.5 MG, EVERYDAY
     Route: 048
     Dates: end: 20210610
  12. CARBOCYSTEINE [Concomitant]
     Active Substance: CARBOCYSTEINE
     Indication: Product used for unknown indication
     Dosage: 500 MG, Q8H
     Route: 048
  13. REBAMIPIDE [Concomitant]
     Active Substance: REBAMIPIDE
     Indication: Prophylaxis
     Dosage: 100 MG, Q8H
     Route: 048
  14. LINAGLIPTIN [Concomitant]
     Active Substance: LINAGLIPTIN
     Indication: Product used for unknown indication
     Dosage: 5 MG, EVERYDAY
     Route: 048
     Dates: start: 20210611
  15. CARBOPLATIN [Concomitant]
     Active Substance: CARBOPLATIN
     Indication: Non-small cell lung cancer recurrent
     Dosage: UNK
     Route: 065
  16. CARBOPLATIN [Concomitant]
     Active Substance: CARBOPLATIN
     Route: 065
  17. PACLITAXEL [Concomitant]
     Active Substance: PACLITAXEL
     Indication: Non-small cell lung cancer recurrent
     Route: 065
  18. PACLITAXEL [Concomitant]
     Active Substance: PACLITAXEL
     Route: 065
  19. ACYCLOVIR [Concomitant]
     Active Substance: ACYCLOVIR
     Indication: Product used for unknown indication
     Route: 041
  20. ACYCLOVIR [Concomitant]
     Active Substance: ACYCLOVIR
     Route: 041
  21. ACYCLOVIR [Concomitant]
     Active Substance: ACYCLOVIR
     Route: 041
  22. ACYCLOVIR [Concomitant]
     Active Substance: ACYCLOVIR
     Dosage: UNK
     Route: 041
  23. VALACYCLOVIR HYDROCHLORIDE [Concomitant]
     Active Substance: VALACYCLOVIR HYDROCHLORIDE
     Indication: Product used for unknown indication
     Route: 048
  24. VALACYCLOVIR HYDROCHLORIDE [Concomitant]
     Active Substance: VALACYCLOVIR HYDROCHLORIDE
     Route: 048
  25. VALACYCLOVIR HYDROCHLORIDE [Concomitant]
     Active Substance: VALACYCLOVIR HYDROCHLORIDE
     Route: 048
  26. VALACYCLOVIR HYDROCHLORIDE [Concomitant]
     Active Substance: VALACYCLOVIR HYDROCHLORIDE
     Dosage: UNK
     Route: 048
  27. AMLODIPINE [Concomitant]
     Active Substance: AMLODIPINE BESYLATE
     Indication: Product used for unknown indication
     Dosage: 5 MG, EVERYDAY
     Route: 048

REACTIONS (13)
  - Thrombocytopenia [Recovered/Resolved]
  - Device related infection [Unknown]
  - Aspergillus infection [Unknown]
  - Acute kidney injury [Recovered/Resolved with Sequelae]
  - Folliculitis [Unknown]
  - Constipation [Not Recovered/Not Resolved]
  - White blood cell count decreased [Unknown]
  - Neutrophil count decreased [Unknown]
  - Rash maculo-papular [Unknown]
  - Immune-mediated nephritis [Recovered/Resolved with Sequelae]
  - Immune-mediated lung disease [Recovering/Resolving]
  - Herpes simplex [Unknown]
  - Blood creatinine increased [Recovering/Resolving]

NARRATIVE: CASE EVENT DATE: 20210407
